FAERS Safety Report 15477655 (Version 1)
Quarter: 2018Q4

REPORT INFORMATION
  Report Type: Report from Study
  Country: US (occurrence: US)
  Receive Date: 20181009
  Receipt Date: 20181009
  Transmission Date: 20190205
  Serious: Yes (Hospitalization)
  Sender: FDA-Public Use
  Company Number: US-BAUSCH-BL-2018-027490

PATIENT
  Sex: Male
  Weight: 106.24 kg

DRUGS (2)
  1. XIFAXAN [Suspect]
     Active Substance: RIFAXIMIN
     Indication: CIRRHOSIS ALCOHOLIC
     Route: 048
     Dates: start: 201710
  2. XIFAXAN [Suspect]
     Active Substance: RIFAXIMIN
     Indication: ASCITES

REACTIONS (1)
  - Bacterial infection [Recovering/Resolving]
